FAERS Safety Report 8415706-7 (Version None)
Quarter: 2012Q2

REPORT INFORMATION
  Report Type: 
  Country: None (occurrence: None)
  Receive Date: 20120606
  Receipt Date: 20120523
  Transmission Date: 20120825
  Serious: Yes (Hospitalization)
  Sender: FDA-Public Use
  Company Number: ES-CELGENEUS-144-C5013-11102532

PATIENT
  Sex: Male
  Weight: 87.5 kg

DRUGS (8)
  1. LENALIDOMIDE [Suspect]
     Indication: PROSTATE CANCER
     Dosage: 25 MILLIGRAM
     Route: 048
     Dates: start: 20110530, end: 20110614
  2. DOCETAXEL [Suspect]
     Indication: PROSTATE CANCER
     Dosage: 75 MILLIGRAM/SQ. METER
     Route: 041
     Dates: start: 20110530, end: 20110530
  3. PREDNISONE [Suspect]
     Dosage: 5 MILLIGRAM
     Route: 065
     Dates: start: 20111003, end: 20111023
  4. ELIGARD [Concomitant]
     Indication: PROSTATE CANCER
     Route: 065
     Dates: start: 20101201
  5. OMEPRAZOLE [Concomitant]
     Indication: PROPHYLAXIS
     Dosage: 20 MILLIGRAM
     Route: 065
     Dates: start: 20030101
  6. LENALIDOMIDE [Suspect]
     Route: 048
     Dates: start: 20111003, end: 20111016
  7. PREDNISONE [Suspect]
     Indication: PROSTATE CANCER
     Dosage: 10 MILLIGRAM
     Route: 065
     Dates: start: 20110530
  8. DOCETAXEL [Suspect]
     Dosage: 75 MILLIGRAM/SQ. METER
     Route: 041
     Dates: start: 20111003, end: 20111003

REACTIONS (2)
  - DYSPNOEA [None]
  - GENERALISED OEDEMA [None]
